FAERS Safety Report 7787116-7 (Version None)
Quarter: 2011Q3

REPORT INFORMATION
  Report Type: 
  Country: None (occurrence: None)
  Receive Date: 20110929
  Receipt Date: 20110926
  Transmission Date: 20111222
  Serious: Yes (Death, Other)
  Sender: FDA-Public Use
  Company Number: US-CELGENEUS-163-21880-11083403

PATIENT
  Sex: Female
  Weight: 63.106 kg

DRUGS (8)
  1. DIOVAN [Concomitant]
     Dosage: 100 MILLIGRAM
     Route: 048
     Dates: start: 20010101, end: 20110701
  2. PLAVIX [Concomitant]
     Dosage: 75 MILLIGRAM
     Route: 048
     Dates: start: 20010101
  3. ASPIRIN [Concomitant]
     Dosage: 81 MILLIGRAM
     Route: 048
     Dates: start: 20010101
  4. ACTOS [Concomitant]
     Dosage: 15
     Route: 048
     Dates: start: 20010101
  5. METOPROLOL TARTRATE [Concomitant]
     Dosage: 1/2
     Route: 048
     Dates: start: 20110101, end: 20110701
  6. ARIMIDEX [Concomitant]
     Route: 048
     Dates: start: 20090101
  7. LIPITOR [Concomitant]
     Dosage: 40 MILLIGRAM
     Route: 048
     Dates: start: 20010101
  8. REVLIMID [Suspect]
     Dosage: 10 MILLIGRAM
     Route: 048
     Dates: start: 20110623

REACTIONS (2)
  - BREAST CANCER METASTATIC [None]
  - HEPATIC FUNCTION ABNORMAL [None]
